FAERS Safety Report 8959576 (Version 3)
Quarter: 2012Q4

REPORT INFORMATION
  Report Type: 
  Country: JP (occurrence: JP)
  Receive Date: 20121212
  Receipt Date: 20121224
  Transmission Date: 20130627
  Serious: Yes (Death, Hospitalization)
  Sender: FDA-Public Use
  Company Number: PHHY2012JP114197

PATIENT
  Age: 46 Year
  Sex: Female

DRUGS (3)
  1. NEORAL [Suspect]
     Indication: APLASTIC ANAEMIA
     Dates: start: 201002, end: 201005
  2. ANTITHYMOCYTE IMMUNOGLOBULIN [Suspect]
     Indication: APLASTIC ANAEMIA
     Dates: start: 201002
  3. GRANULOCYTE STIMULATING FACTORS [Concomitant]
     Indication: APLASTIC ANAEMIA
     Dates: start: 201002

REACTIONS (4)
  - Epstein-Barr virus associated lymphoma [Fatal]
  - Monoplegia [Fatal]
  - Pneumocystis jiroveci pneumonia [Recovering/Resolving]
  - Pyrexia [Recovering/Resolving]
